FAERS Safety Report 11045051 (Version 3)
Quarter: 2015Q3

REPORT INFORMATION
  Report Type: Report from Study
  Country: CZ (occurrence: CZ)
  Receive Date: 20150417
  Receipt Date: 20150717
  Transmission Date: 20151125
  Serious: Yes (Hospitalization)
  Sender: FDA-Public Use
  Company Number: CZ-GILEAD-2015-0148312

PATIENT
  Age: 74 Year
  Sex: Female
  Weight: 71 kg

DRUGS (46)
  1. BENDAMUSTINE [Suspect]
     Active Substance: BENDAMUSTINE
     Dosage: 1 DF, CYCLICAL
     Route: 042
  2. BENDAMUSTINE [Suspect]
     Active Substance: BENDAMUSTINE
     Dosage: 1 DF, CYCLICAL
     Route: 042
  3. BENDAMUSTINE [Suspect]
     Active Substance: BENDAMUSTINE
     Dosage: 1 DF, CYCLICAL
     Route: 042
  4. BENDAMUSTINE [Suspect]
     Active Substance: BENDAMUSTINE
     Dosage: 108 MG, CYCLICAL
     Route: 042
     Dates: start: 20150416, end: 20150416
  5. LAGOSA [Concomitant]
     Indication: ASPARTATE AMINOTRANSFERASE INCREASED
  6. DITHIADEN [Concomitant]
     Active Substance: BISULEPIN
     Route: 042
     Dates: start: 20150102, end: 20150623
  7. RITUXIMAB [Suspect]
     Active Substance: RITUXIMAB
     Dosage: 1 DF, CYCLICAL
     Route: 042
  8. BENDAMUSTINE [Suspect]
     Active Substance: BENDAMUSTINE
     Dosage: 1 DF, CYCLICAL
     Route: 042
  9. IDELALISIB [Suspect]
     Active Substance: IDELALISIB
     Dosage: 150 MG, BID
     Route: 048
     Dates: start: 20150519, end: 20150616
  10. RITUXIMAB [Suspect]
     Active Substance: RITUXIMAB
     Indication: CHRONIC LYMPHOCYTIC LEUKAEMIA
     Dosage: 712 MG, CYCLICAL
     Route: 042
     Dates: start: 20150102, end: 20150102
  11. BENDAMUSTINE [Suspect]
     Active Substance: BENDAMUSTINE
     Dosage: 1 DF, CYCLICAL
     Route: 042
  12. BENDAMUSTINE [Suspect]
     Active Substance: BENDAMUSTINE
     Dosage: 1 DF, CYCLICAL
     Route: 042
  13. BENDAMUSTINE [Suspect]
     Active Substance: BENDAMUSTINE
     Dosage: 171 MG, CYCLICAL
     Route: 042
     Dates: start: 20150314, end: 20150314
  14. ORTANOL                            /00661201/ [Concomitant]
     Indication: GASTROOESOPHAGEAL REFLUX DISEASE
     Route: 048
     Dates: start: 2008
  15. NEUPOGEN [Concomitant]
     Active Substance: FILGRASTIM
     Indication: NEUTROPENIA
  16. IDELALISIB [Suspect]
     Active Substance: IDELALISIB
     Dosage: 150 MG, BID
     Route: 048
     Dates: start: 20150623
  17. BENDAMUSTINE [Suspect]
     Active Substance: BENDAMUSTINE
     Indication: CHRONIC LYMPHOCYTIC LEUKAEMIA
     Dosage: 171 MG, CYCLICAL
     Route: 042
     Dates: start: 20150102, end: 20150102
  18. BENDAMUSTINE [Suspect]
     Active Substance: BENDAMUSTINE
     Dosage: 171 MG, UNK
     Route: 042
     Dates: start: 20150103, end: 20150103
  19. BENDAMUSTINE [Suspect]
     Active Substance: BENDAMUSTINE
     Dosage: 1 DF, CYCLICAL
     Route: 042
  20. BENDAMUSTINE [Suspect]
     Active Substance: BENDAMUSTINE
     Dosage: 171 MG, CYCLICAL
     Route: 042
     Dates: start: 20150205, end: 20150205
  21. BENDAMUSTINE [Suspect]
     Active Substance: BENDAMUSTINE
     Dosage: 108 MG, CYCLICAL
     Route: 042
     Dates: start: 20150415, end: 20150415
  22. HYDROCORTISON                      /00028601/ [Concomitant]
     Active Substance: HYDROCORTISONE
     Route: 042
     Dates: start: 20150102, end: 20150623
  23. RITUXIMAB [Suspect]
     Active Substance: RITUXIMAB
     Dosage: 1 DF, CYCLICAL
     Route: 042
  24. RITUXIMAB [Suspect]
     Active Substance: RITUXIMAB
     Dosage: 950 MG, CYCLICAL
     Route: 042
     Dates: start: 20150205, end: 20150205
  25. BENDAMUSTINE [Suspect]
     Active Substance: BENDAMUSTINE
     Dosage: 1 DF, CYCLICAL
     Route: 042
  26. BENDAMUSTINE [Suspect]
     Active Substance: BENDAMUSTINE
     Dosage: 1 DF, CYCLICAL
     Route: 042
  27. PARALEN [Concomitant]
     Active Substance: ACETAMINOPHEN
     Route: 048
     Dates: start: 20150102, end: 20150623
  28. KALIUM CHLORATUM [Concomitant]
     Active Substance: POTASSIUM CHLORIDE
     Indication: GASTROOESOPHAGEAL REFLUX DISEASE
     Route: 048
     Dates: start: 201409
  29. DETRALEX [Concomitant]
     Active Substance: DIOSMIN\HESPERIDIN
     Route: 048
     Dates: start: 20150104
  30. IDELALISIB [Suspect]
     Active Substance: IDELALISIB
     Dosage: 150 MG, BID
     Route: 048
     Dates: start: 20150313, end: 20150327
  31. RITUXIMAB [Suspect]
     Active Substance: RITUXIMAB
     Dosage: 1 DF, CYCLICAL
     Route: 042
  32. LAGOSA [Concomitant]
     Indication: ALANINE AMINOTRANSFERASE INCREASED
     Route: 048
     Dates: start: 20150226, end: 20150313
  33. LAGOSA [Concomitant]
     Indication: BLOOD BILIRUBIN INCREASED
  34. BISEPTOL [Concomitant]
     Active Substance: SULFAMETHOXAZOLE\TRIMETHOPRIM
     Route: 048
     Dates: start: 20150105
  35. IDELALISIB [Suspect]
     Active Substance: IDELALISIB
     Indication: CHRONIC LYMPHOCYTIC LEUKAEMIA
     Dosage: 150 MG, BID
     Route: 048
     Dates: start: 20150102, end: 20150226
  36. RITUXIMAB [Suspect]
     Active Substance: RITUXIMAB
     Dosage: 1 DF, CYCLICAL
     Route: 042
  37. RITUXIMAB [Suspect]
     Active Substance: RITUXIMAB
     Dosage: 950 MG, CYCLICAL
     Route: 042
     Dates: start: 20150313, end: 20150313
  38. BENDAMUSTINE [Suspect]
     Active Substance: BENDAMUSTINE
     Dosage: 1 DF, CYCLICAL
     Route: 042
  39. BENDAMUSTINE [Suspect]
     Active Substance: BENDAMUSTINE
     Dosage: 171 MG, CYCLICAL
     Route: 042
     Dates: start: 20150206, end: 20150206
  40. BENDAMUSTINE [Suspect]
     Active Substance: BENDAMUSTINE
     Dosage: 171 MG, CYCLICAL
     Route: 042
     Dates: start: 20150313, end: 20150313
  41. IDELALISIB [Suspect]
     Active Substance: IDELALISIB
     Dosage: 150 MG, BID
     Route: 048
     Dates: start: 20150403, end: 20150513
  42. RITUXIMAB [Suspect]
     Active Substance: RITUXIMAB
     Dosage: 1 DF, CYCLICAL
     Route: 042
  43. RITUXIMAB [Suspect]
     Active Substance: RITUXIMAB
     Dosage: 900 MG, CYCLICAL
     Route: 042
     Dates: start: 20150415, end: 20150415
  44. KYTRIL [Concomitant]
     Active Substance: GRANISETRON HYDROCHLORIDE
     Route: 042
     Dates: start: 20150313, end: 20150314
  45. ISOPTIN SR [Concomitant]
     Active Substance: VERAPAMIL HYDROCHLORIDE
     Indication: HYPERTENSION
     Route: 048
     Dates: start: 2009
  46. MILURIT [Concomitant]
     Active Substance: ALLOPURINOL
     Route: 048
     Dates: start: 20150102

REACTIONS (4)
  - Anaemia [Recovered/Resolved]
  - Urinary tract infection [Recovered/Resolved]
  - Cytopenia [None]
  - Neutropenia [None]

NARRATIVE: CASE EVENT DATE: 20150410
